FAERS Safety Report 9260485 (Version 3)
Quarter: 2013Q4

REPORT INFORMATION
  Report Type: Spontaneous
  Country: BR (occurrence: BR)
  Receive Date: 20130429
  Receipt Date: 20131008
  Transmission Date: 20140711
  Serious: Yes (Other)
  Sender: FDA-Public Use
  Company Number: BR-ROCHE-1218627

PATIENT
  Sex: Male
  Weight: 80 kg

DRUGS (4)
  1. RIVOTRIL [Suspect]
     Indication: INSOMNIA
     Route: 065
     Dates: start: 2011
  2. ENALAPRIL [Concomitant]
     Route: 065
  3. LODIPINE [Concomitant]
     Route: 065
  4. ALLOPURINOL [Concomitant]
     Route: 065

REACTIONS (10)
  - Gastrointestinal disorder [Unknown]
  - Hepatomegaly [Unknown]
  - Duodenal papillitis [Recovered/Resolved]
  - Renal cyst [Not Recovered/Not Resolved]
  - Vein disorder [Unknown]
  - Hepatic cyst [Unknown]
  - Medication error [Unknown]
  - Drug ineffective [Unknown]
  - Hepatic cirrhosis [Recovered/Resolved]
  - Gastrooesophageal reflux disease [Recovered/Resolved]
